FAERS Safety Report 21069631 (Version 3)
Quarter: 2022Q3

REPORT INFORMATION
  Report Type: Spontaneous
  Country: US (occurrence: US)
  Receive Date: 20220712
  Receipt Date: 20220714
  Transmission Date: 20221027
  Serious: No
  Sender: FDA-Public Use
  Company Number: US-PERRIGO-21US028296

PATIENT
  Sex: Female

DRUGS (2)
  1. MICONAZOLE 1 [Suspect]
     Active Substance: MICONAZOLE NITRATE
     Indication: Vulvovaginal mycotic infection
     Dosage: UNKNOWN, UNKNOWN
     Route: 067
     Dates: start: 202109
  2. MICONAZOLE 1 [Suspect]
     Active Substance: MICONAZOLE NITRATE
     Indication: Vulvovaginal mycotic infection
     Dosage: UNKNOWN, UNKNOWN
     Route: 061
     Dates: start: 202109

REACTIONS (4)
  - Vulvovaginal inflammation [Unknown]
  - Vulvovaginal pain [Unknown]
  - Vaginal discharge [Unknown]
  - Dysuria [Unknown]

NARRATIVE: CASE EVENT DATE: 20210901
